FAERS Safety Report 5293315-9 (Version None)
Quarter: 2007Q2

REPORT INFORMATION
  Report Type: 
  Country: None (occurrence: None)
  Receive Date: 20070411
  Receipt Date: 20070404
  Transmission Date: 20071010
  Serious: Yes (Death)
  Sender: FDA-Public Use
  Company Number: JP-AVENTIS-200710199JP

PATIENT
  Age: 84 Year
  Sex: Male
  Weight: 45 kg

DRUGS (11)
  1. TAXOTERE [Suspect]
     Indication: NON-SMALL CELL LUNG CANCER
     Route: 041
     Dates: start: 20070118, end: 20070118
  2. VITAMEDIN                          /00274301/ [Concomitant]
  3. CLARITHROMYCIN [Concomitant]
  4. GASTER [Concomitant]
  5. NAIXAN                             /00256201/ [Concomitant]
  6. RINDERON                           /00008501/ [Concomitant]
  7. BIOFERMIN R [Concomitant]
  8. CARBAZOCHROME SODIUM SULFONATE [Concomitant]
     Dosage: DOSE: 3 TABLETS
  9. ALLOID G [Concomitant]
  10. OXYCONTIN [Concomitant]
     Route: 048
     Dates: start: 20070116, end: 20070122
  11. OPSO [Concomitant]
     Dosage: DOSE: 5MG/UNIT
     Route: 048
     Dates: start: 20070105

REACTIONS (2)
  - ILEUS [None]
  - WHITE BLOOD CELL COUNT DECREASED [None]
